FAERS Safety Report 5448356-5 (Version None)
Quarter: 2007Q3

REPORT INFORMATION
  Report Type: 
  Country: None (occurrence: None)
  Receive Date: 20070906
  Receipt Date: 20070828
  Transmission Date: 20080115
  Serious: Yes (Congenital Anomaly)
  Sender: FDA-Public Use
  Company Number: 160675ISR

PATIENT

DRUGS (1)
  1. LAMOTRIGINE [Suspect]
     Indication: EPILEPSY
     Dosage: (100 MG) TRANSPLACENTAL
     Route: 064

REACTIONS (5)
  - ANENCEPHALY [None]
  - CONGENITAL ECTOPIC BLADDER [None]
  - DRUG EXPOSURE DURING PREGNANCY [None]
  - EXOMPHALOS [None]
  - LIMB MALFORMATION [None]
